FAERS Safety Report 12114714 (Version 2)
Quarter: 2016Q1

REPORT INFORMATION
  Report Type: Spontaneous
  Country: US (occurrence: US)
  Receive Date: 20160225
  Receipt Date: 20160303
  Transmission Date: 20160526
  Serious: Yes (Other)
  Sender: FDA-Public Use
  Company Number: CHPA2016US002320

PATIENT
  Sex: Female

DRUGS (2)
  1. GAS-X [Suspect]
     Active Substance: DIMETHICONE
     Indication: ABDOMINAL DISTENSION
  2. GAS-X [Suspect]
     Active Substance: DIMETHICONE
     Indication: FLATULENCE
     Dosage: 1 TO 2 AS REQUIRED
     Route: 048

REACTIONS (1)
  - Pancreatic carcinoma [Not Recovered/Not Resolved]
